FAERS Safety Report 4461911-4 (Version None)
Quarter: 2004Q3

REPORT INFORMATION
  Report Type: 
  Country: None (occurrence: None)
  Receive Date: 20040929
  Receipt Date: 20031117
  Transmission Date: 20050211
  Serious: No
  Sender: FDA-Public Use
  Company Number: US-GLAXOSMITHKLINE-A0440009A

PATIENT
  Sex: Female

DRUGS (1)
  1. SEREVENT [Suspect]
     Route: 055

REACTIONS (1)
  - LUNG INFECTION [None]
